FAERS Safety Report 9387117 (Version 1)
Quarter: 2013Q3

REPORT INFORMATION
  Report Type: Spontaneous
  Country: JP (occurrence: JP)
  Receive Date: 20130708
  Receipt Date: 20130708
  Transmission Date: 20140515
  Serious: Yes (Hospitalization, Other)
  Sender: FDA-Public Use
  Company Number: JP-JNJFOC-20130700620

PATIENT
  Age: 37 Year
  Sex: Male
  Weight: 55.4 kg

DRUGS (17)
  1. INFLIXIMAB [Suspect]
     Indication: CROHN^S DISEASE
     Route: 042
     Dates: start: 201207
  2. INFLIXIMAB [Suspect]
     Indication: CROHN^S DISEASE
     Route: 042
     Dates: start: 201209
  3. INFLIXIMAB [Suspect]
     Indication: CROHN^S DISEASE
     Route: 042
     Dates: start: 20120324
  4. INFLIXIMAB [Suspect]
     Indication: CROHN^S DISEASE
     Route: 042
     Dates: start: 201001, end: 2010
  5. INFLIXIMAB [Suspect]
     Indication: CROHN^S DISEASE
     Route: 042
     Dates: start: 2011
  6. INFLIXIMAB [Suspect]
     Indication: CROHN^S DISEASE
     Route: 042
     Dates: start: 200907
  7. INFLIXIMAB [Suspect]
     Indication: CROHN^S DISEASE
     Route: 042
     Dates: start: 201205
  8. PREDNISOLONE [Concomitant]
     Route: 065
     Dates: start: 20090921
  9. PREDNISOLONE [Concomitant]
     Route: 065
     Dates: start: 20090914
  10. PREDNISOLONE [Concomitant]
     Route: 065
     Dates: start: 2012
  11. PREDNISOLONE [Concomitant]
     Route: 065
     Dates: start: 20090928
  12. PREDNISOLONE [Concomitant]
     Route: 065
     Dates: start: 200911
  13. PREDNISOLONE [Concomitant]
     Route: 065
     Dates: start: 200906
  14. PREDNISOLONE [Concomitant]
     Route: 065
     Dates: start: 200909
  15. PREDNISOLONE [Concomitant]
     Route: 065
     Dates: start: 200910
  16. PREDNISOLONE [Concomitant]
     Route: 065
     Dates: start: 201010
  17. 6MP [Concomitant]
     Route: 065
     Dates: start: 201007

REACTIONS (5)
  - Subileus [Unknown]
  - Arthritis [Unknown]
  - Drug ineffective [Unknown]
  - Skin exfoliation [Unknown]
  - Anastomotic ulcer perforation [Unknown]
